FAERS Safety Report 5123595-1 (Version None)
Quarter: 2006Q4

REPORT INFORMATION
  Report Type: 
  Country: None (occurrence: None)
  Receive Date: 20061010
  Receipt Date: 20060928
  Transmission Date: 20070319
  Serious: Yes (Other)
  Sender: FDA-Public Use
  Company Number: PHBS2006DE15144

PATIENT
  Age: 39 Year
  Sex: Male

DRUGS (2)
  1. CLOZAPINE [Suspect]
     Indication: SCHIZOPHRENIA
     Dosage: 150 MG/DAY
  2. LORAZEPAM [Concomitant]
     Dosage: 5 MG/DAY

REACTIONS (5)
  - CATECHOLAMINES URINE INCREASED [None]
  - HEART RATE INCREASED [None]
  - HYPERTENSION [None]
  - PSEUDOPHAEOCHROMOCYTOMA [None]
  - WEIGHT DECREASED [None]
